FAERS Safety Report 20885030 (Version 1)
Quarter: 2022Q2

REPORT INFORMATION
  Report Type: Spontaneous
  Country: US (occurrence: US)
  Receive Date: 20220527
  Receipt Date: 20220527
  Transmission Date: 20220720
  Serious: No
  Sender: FDA-Public Use
  Company Number: ENDG22-02114

PATIENT
  Sex: Female

DRUGS (1)
  1. VARENICLINE [Suspect]
     Active Substance: VARENICLINE
     Indication: Smoking cessation therapy
     Dosage: UNK UNKNOWN, UNKNOWN
     Route: 065

REACTIONS (12)
  - Thyroid function test abnormal [Unknown]
  - Alopecia [Unknown]
  - Urine odour abnormal [Unknown]
  - Headache [Unknown]
  - Abdominal pain upper [Unknown]
  - Dyspepsia [Unknown]
  - Abdominal distension [Unknown]
  - Flatulence [Unknown]
  - Diarrhoea [Unknown]
  - Tremor [Unknown]
  - Drug ineffective [Unknown]
  - Product substitution issue [Unknown]
